FAERS Safety Report 12803772 (Version 3)
Quarter: 2016Q4

REPORT INFORMATION
  Report Type: Spontaneous
  Country: RS (occurrence: RS)
  Receive Date: 20161003
  Receipt Date: 20161024
  Transmission Date: 20170207
  Serious: Yes (Hospitalization, Other)
  Sender: FDA-Public Use
  Company Number: RS-FERRINGPH-2016FE05296

PATIENT

DRUGS (3)
  1. SINACILIN [Concomitant]
     Dosage: UNK
     Dates: start: 20160921, end: 20160922
  2. MINIRIN [Suspect]
     Active Substance: DESMOPRESSIN ACETATE
     Indication: ENURESIS
     Dosage: 0.2 MG, 1 TIME DAILY
     Route: 048
     Dates: start: 20160921, end: 20160922
  3. MINIRIN [Suspect]
     Active Substance: DESMOPRESSIN ACETATE
     Dosage: 0.2 MG, 1 TIME DAILY
     Route: 065
     Dates: start: 20160919, end: 20160920

REACTIONS (9)
  - Anger [Unknown]
  - Viral infection [Unknown]
  - Aggression [Recovered/Resolved]
  - Crying [Unknown]
  - Anxiety [Recovered/Resolved]
  - Anger [Recovered/Resolved]
  - Anxiety [Recovered/Resolved]
  - Hallucination, visual [Recovered/Resolved]
  - Abnormal behaviour [Unknown]

NARRATIVE: CASE EVENT DATE: 20160919
